FAERS Safety Report 7473833-5 (Version None)
Quarter: 2011Q2

REPORT INFORMATION
  Report Type: 
  Country: None (occurrence: None)
  Receive Date: 20110503
  Receipt Date: 20101201
  Transmission Date: 20111010
  Serious: Yes (Hospitalization)
  Sender: FDA-Public Use
  Company Number: WAES 1010CHN00014

PATIENT
  Age: 61 Year
  Sex: Male

DRUGS (6)
  1. PLACEBO (UNSPECIFIED) [Suspect]
     Indication: HIGH DENSITY LIPOPROTEIN DECREASED
     Dosage: PO
     Route: 048
     Dates: start: 20080229, end: 20100715
  2. ASPIRIN [Concomitant]
  3. LORATADINE [Concomitant]
  4. TAB LAROPIPRANT (+) NIACIN [Suspect]
     Indication: HIGH DENSITY LIPOPROTEIN DECREASED
     Dosage: 20 MG-1 GM/DAILY, PO; 40 MG-2 G/DAILY, PO
     Route: 048
     Dates: end: 20080228
  5. TAB LAROPIPRANT (+) NIACIN [Suspect]
     Indication: HIGH DENSITY LIPOPROTEIN DECREASED
     Dosage: 20 MG-1 GM/DAILY, PO; 40 MG-2 G/DAILY, PO
     Route: 048
     Dates: start: 20080104
  6. ZOCOR [Suspect]
     Indication: HYPERCHOLESTEROLAEMIA
     Dosage: 40 MG/DAILY, PO
     Route: 048
     Dates: start: 20071202, end: 20100715

REACTIONS (12)
  - HENOCH-SCHONLEIN PURPURA [None]
  - URTICARIA [None]
  - DIARRHOEA [None]
  - ALANINE AMINOTRANSFERASE INCREASED [None]
  - URINE IRON INCREASED [None]
  - GAMMA-GLUTAMYLTRANSFERASE INCREASED [None]
  - PIGMENTATION DISORDER [None]
  - EPSTEIN-BARR VIRUS ANTIBODY POSITIVE [None]
  - BLOOD ALKALINE PHOSPHATASE INCREASED [None]
  - THROMBIN TIME PROLONGED [None]
  - CHOLELITHIASIS [None]
  - BLOOD BILIRUBIN INCREASED [None]
